FAERS Safety Report 15684918 (Version 2)
Quarter: 2018Q4

REPORT INFORMATION
  Report Type: Spontaneous
  Country: PT (occurrence: PT)
  Receive Date: 20181204
  Receipt Date: 20181213
  Transmission Date: 20190205
  Serious: Yes (Other)
  Sender: FDA-Public Use
  Company Number: PT-LPDUSPRD-20182267

PATIENT
  Age: 46 Year
  Sex: Female

DRUGS (1)
  1. VENOFER [Suspect]
     Active Substance: IRON SUCROSE
     Dosage: 400 MG, 1 D
     Route: 042
     Dates: start: 20181025, end: 20181025

REACTIONS (4)
  - Headache [Unknown]
  - Pyrexia [Unknown]
  - Oedema peripheral [Unknown]
  - Dysphonia [Unknown]

NARRATIVE: CASE EVENT DATE: 20181025
